FAERS Safety Report 8317320-0 (Version None)
Quarter: 2012Q2

REPORT INFORMATION
  Report Type: 
  Country: None (occurrence: None)
  Receive Date: 20120427
  Receipt Date: 20120419
  Transmission Date: 20120825
  Serious: Yes (Other)
  Sender: FDA-Public Use
  Company Number: GB-ASTELLAS-2012US004095

PATIENT
  Sex: Male
  Weight: 65 kg

DRUGS (9)
  1. FINASTERIDE [Concomitant]
     Indication: PROSTATE CANCER
     Dosage: UNK
     Route: 065
  2. MOVICOL [Concomitant]
     Indication: CONSTIPATION
     Dosage: UNK
     Route: 065
     Dates: start: 20120217
  3. BLINDED OSI-906 [Suspect]
     Indication: NON-SMALL CELL LUNG CANCER
     Dosage: 100 MG, BID
     Route: 048
     Dates: start: 20111114, end: 20120418
  4. RANITIDINE [Concomitant]
     Indication: DYSPEPSIA
     Dosage: UNK
     Route: 065
     Dates: start: 20111209
  5. LACTULOSE [Concomitant]
     Indication: ANTIDEPRESSANT THERAPY
     Dosage: UNK
     Route: 065
  6. ALFUZOSIN HCL [Concomitant]
     Indication: PROSTATE CANCER
     Dosage: UNK
     Route: 065
  7. ERLOTINIB HYDROCHLORIDE [Suspect]
     Indication: NON-SMALL CELL LUNG CANCER
     Dosage: 100 MG, UID/QD
     Route: 048
     Dates: start: 20111114, end: 20120418
  8. AMLODIPINE [Concomitant]
     Indication: HYPERTENSION
     Dosage: UNK
     Route: 065
  9. REBOXETINE [Concomitant]
     Indication: ANTIDEPRESSANT THERAPY
     Dosage: UNK
     Route: 065
     Dates: start: 20120320

REACTIONS (1)
  - IRIDOCYCLITIS [None]
